FAERS Safety Report 11058495 (Version 1)
Quarter: 2015Q2

REPORT INFORMATION
  Report Type: Report from Study
  Country: US (occurrence: None)
  Receive Date: 20150420
  Receipt Date: 20150420
  Transmission Date: 20150821
  Serious: No
  Sender: FDA-Public Use
  Company Number: AEGR001095

PATIENT
  Age: 59 Year
  Sex: Male

DRUGS (12)
  1. LISINOPRIL. [Concomitant]
     Active Substance: LISINOPRIL
  2. VITAMIN E (TOCOPHERLY ACETATE) [Concomitant]
  3. ASPIRIN (ACETYLSALICYLIC ACID) [Concomitant]
     Active Substance: ASPIRIN
  4. JUXTAPID [Suspect]
     Active Substance: LOMITAPIDE MESYLATE
     Indication: TYPE IIA HYPERLIPIDAEMIA
     Dates: start: 20130617, end: 20131031
  5. ROSUVASTATIN [Concomitant]
     Active Substance: ROSUVASTATIN
  6. FLUTICASONE W/SALMETEROL [Concomitant]
     Active Substance: FLUTICASONE PROPIONATE\SALMETEROL XINAFOATE
  7. LOVAZA [Concomitant]
     Active Substance: OMEGA-3-ACID ETHYL ESTERS
  8. WARFARIN (WARFARIN SODIUM) [Concomitant]
     Active Substance: WARFARIN
  9. MONTELUKAST SODIUM. [Concomitant]
     Active Substance: MONTELUKAST SODIUM
  10. CARVEDILOL. [Concomitant]
     Active Substance: CARVEDILOL
  11. COLESEVELAM [Concomitant]
     Active Substance: COLESEVELAM
  12. LORATADINE. [Concomitant]
     Active Substance: LORATADINE

REACTIONS (1)
  - Sinusitis [None]

NARRATIVE: CASE EVENT DATE: 20141009
